FAERS Safety Report 7824653-0 (Version None)
Quarter: 2011Q4

REPORT INFORMATION
  Report Type: 
  Country: None (occurrence: None)
  Receive Date: 20111019
  Receipt Date: 20111006
  Transmission Date: 20120403
  Serious: Yes (Hospitalization, Other)
  Sender: FDA-Public Use
  Company Number: PHHY2011US03446

PATIENT
  Sex: Female
  Weight: 94.5 kg

DRUGS (9)
  1. GLEEVEC [Suspect]
     Dosage: 400 MG, DAILY
     Route: 048
     Dates: start: 20110729
  2. GLEEVEC [Suspect]
     Dosage: 800 MG, DAILY
     Route: 048
  3. SUCRALFATE [Concomitant]
     Dosage: UNK UKN, UNK
  4. GLEEVEC [Suspect]
     Dosage: 200 MG, UNK
     Route: 048
     Dates: start: 20110802
  5. LISINOPRIL [Concomitant]
     Dosage: UNK UKN, UNK
  6. LASIX [Concomitant]
     Dosage: UNK UKN, UNK
  7. GLEEVEC [Suspect]
     Indication: GASTROINTESTINAL STROMAL TUMOUR
     Dosage: 400 MG, QD
     Route: 048
     Dates: start: 20091016
  8. ATENOLOL [Concomitant]
     Indication: HYPERTENSION
     Dosage: UNK UKN, UNK
  9. GLYBURIDE [Concomitant]
     Dosage: UNK UKN, UNK

REACTIONS (4)
  - ULCER [None]
  - DRUG INEFFECTIVE [None]
  - NEOPLASM RECURRENCE [None]
  - RASH [None]
